FAERS Safety Report 22826662 (Version 2)
Quarter: 2025Q2

REPORT INFORMATION
  Report Type: Spontaneous
  Country: US (occurrence: US)
  Receive Date: 20230816
  Receipt Date: 20250505
  Transmission Date: 20250716
  Serious: Yes (Other)
  Sender: AUROBINDO
  Company Number: US-MLMSERVICE-20230801-4445587-1

PATIENT
  Sex: Female

DRUGS (6)
  1. OLANZAPINE [Suspect]
     Active Substance: OLANZAPINE
     Indication: Psychotic disorder
     Dosage: 20 MILLIGRAM, ONCE A DAY
     Route: 048
  2. OLANZAPINE [Suspect]
     Active Substance: OLANZAPINE
     Route: 048
  3. OLANZAPINE [Suspect]
     Active Substance: OLANZAPINE
     Route: 048
  4. DIPHENHYDRAMINE [Concomitant]
     Active Substance: DIPHENHYDRAMINE
     Indication: Psychotic disorder
     Dosage: 25 MILLIGRAM, ONCE A DAY (IN THE EVENING)
     Route: 065
  5. LITHIUM [Concomitant]
     Active Substance: LITHIUM
     Indication: Psychotic disorder
     Dosage: 150 MILLIGRAM, ONCE A DAY (IN THE EVENING)
     Route: 065
  6. LITHIUM [Concomitant]
     Active Substance: LITHIUM
     Dosage: 900 MILLIGRAM, ONCE A DAY (DOSE INCREASED)
     Route: 065

REACTIONS (5)
  - Hyperprolactinaemia [Recovered/Resolved]
  - Drug intolerance [Recovering/Resolving]
  - Oestradiol decreased [Recovered/Resolved]
  - Menstruation irregular [Recovered/Resolved]
  - Weight increased [Unknown]
